FAERS Safety Report 9054274 (Version 1)
Quarter: 2013Q1

REPORT INFORMATION
  Report Type: Spontaneous
  Country: FR (occurrence: FR)
  Receive Date: 20130208
  Receipt Date: 20130208
  Transmission Date: 20140127
  Serious: Yes (Hospitalization)
  Sender: FDA-Public Use
  Company Number: FR-GLAXOSMITHKLINE-B0864313A

PATIENT
  Age: 71 None
  Sex: Female

DRUGS (9)
  1. ARIXTRA [Suspect]
     Indication: PROPHYLAXIS
     Dosage: 2.5MG PER DAY
     Route: 058
     Dates: start: 20120913, end: 20120925
  2. AUGMENTIN [Suspect]
     Indication: CHOLECYSTITIS
     Dosage: 1G THREE TIMES PER DAY
     Route: 048
     Dates: start: 20120915, end: 20120925
  3. IXPRIM [Suspect]
     Indication: MYALGIA
     Dosage: 1UNIT THREE TIMES PER DAY
     Route: 048
     Dates: start: 20120912, end: 20120913
  4. EFFERALGAN [Suspect]
     Indication: MYALGIA
     Dosage: 1UNIT THREE TIMES PER DAY
     Route: 048
     Dates: start: 20120912, end: 20120913
  5. TOPALGIC [Suspect]
     Indication: MYALGIA
     Dosage: 1UNIT TWICE PER DAY
     Route: 048
     Dates: start: 20120913, end: 20120919
  6. INEXIUM [Suspect]
     Indication: GASTRIC ULCER
     Dosage: 1UNIT PER DAY
     Route: 048
  7. LASILIX [Suspect]
     Indication: PRODUCT USED FOR UNKNOWN INDICATION
     Dosage: 1UNIT PER DAY
     Route: 048
  8. LEXOMIL [Suspect]
     Indication: SLEEP DISORDER
     Dosage: .5UNIT PER DAY
     Route: 048
  9. TRANSIPEG [Suspect]
     Indication: CONSTIPATION
     Dosage: 1UNIT THREE TIMES PER DAY
     Route: 048
     Dates: start: 20120915, end: 20120925

REACTIONS (10)
  - Liver injury [Recovered/Resolved]
  - Hepatic enzyme increased [Recovered/Resolved]
  - Nausea [Recovered/Resolved]
  - Vomiting [Recovered/Resolved]
  - Inflammation [Recovering/Resolving]
  - Pyrexia [Unknown]
  - Hyponatraemia [Unknown]
  - Cholecystitis [Unknown]
  - Hepatic function abnormal [Recovered/Resolved]
  - Constipation [Unknown]
